FAERS Safety Report 18381135 (Version 1)
Quarter: 2020Q4

REPORT INFORMATION
  Report Type: Spontaneous
  Country: US (occurrence: US)
  Receive Date: 20201013
  Receipt Date: 20201013
  Transmission Date: 20210114
  Serious: No
  Sender: FDA-Public Use
  Company Number: None

PATIENT
  Sex: Female

DRUGS (1)
  1. MYCOPHENOLATE 500MG ACCORD HEALTHCARE [Suspect]
     Active Substance: MYCOPHENOLATE MOFETIL
     Indication: LUNG CARCINOMA CELL TYPE UNSPECIFIED STAGE 0
     Route: 048
     Dates: start: 202008

REACTIONS (3)
  - Pain in extremity [None]
  - Muscle spasms [None]
  - Back pain [None]
